FAERS Safety Report 6083032-X (Version None)
Quarter: 2009Q1

REPORT INFORMATION
  Report Type: 
  Country: None (occurrence: None)
  Receive Date: 20090218
  Receipt Date: 20090218
  Transmission Date: 20090719
  Serious: Yes (Death, Hospitalization)
  Sender: FDA-Public Use
  Company Number: CA-ABBOTT-09P-028-0502102-00

PATIENT
  Sex: Male

DRUGS (19)
  1. LUPRON DEPOT [Suspect]
     Indication: PROSTATE CANCER
     Route: 050
     Dates: start: 20070128, end: 20081023
  2. OXAZEPAM [Concomitant]
     Indication: DRUG USE FOR UNKNOWN INDICATION
     Dosage: 1-2 TABS
  3. ZESTRIL [Concomitant]
     Indication: DRUG USE FOR UNKNOWN INDICATION
  4. NOVO-SEMIDE [Concomitant]
     Indication: DRUG USE FOR UNKNOWN INDICATION
  5. NOTRO SPRAY [Concomitant]
     Dosage: UP TO 3 DOSES WITHIN 15 MINS
  6. GLAXAL BASE CR [Concomitant]
     Indication: DRUG USE FOR UNKNOWN INDICATION
     Dosage: APPLY TO LEFT FOOT
  7. PHOSPHATES [Concomitant]
     Indication: DRUG USE FOR UNKNOWN INDICATION
     Dosage: 0.9G-2.4G/5ML 45ML IN 120ML H2O (FOLLOWED BY GLASS OF H2O)
  8. BISACODYL [Concomitant]
     Indication: DRUG USE FOR UNKNOWN INDICATION
  9. DOCUSATE SODIUM [Concomitant]
     Indication: DRUG USE FOR UNKNOWN INDICATION
  10. SYNTHROID [Concomitant]
     Indication: DRUG USE FOR UNKNOWN INDICATION
  11. RIVA-D [Concomitant]
     Indication: DRUG USE FOR UNKNOWN INDICATION
  12. RIVA-SENNA [Concomitant]
     Indication: DRUG USE FOR UNKNOWN INDICATION
     Dosage: 1 TB QAM AND 2 TABS QHS
  13. ASAPHEN [Concomitant]
     Indication: DRUG USE FOR UNKNOWN INDICATION
  14. AVAPRO [Concomitant]
     Indication: DRUG USE FOR UNKNOWN INDICATION
  15. APO-VERAP [Concomitant]
     Indication: DRUG USE FOR UNKNOWN INDICATION
  16. FERROUS SULFATE TAB [Concomitant]
     Indication: DRUG USE FOR UNKNOWN INDICATION
  17. NORTRIPTYLINE HCL [Concomitant]
     Indication: DRUG USE FOR UNKNOWN INDICATION
  18. DOXAZOSIN MESYLATE [Concomitant]
     Indication: DRUG USE FOR UNKNOWN INDICATION
  19. LIPITOR [Concomitant]
     Indication: DRUG USE FOR UNKNOWN INDICATION

REACTIONS (3)
  - ANGINA PECTORIS [None]
  - DIABETES MELLITUS [None]
  - RENAL FAILURE [None]
